FAERS Safety Report 25488492 (Version 3)
Quarter: 2025Q3

REPORT INFORMATION
  Report Type: Spontaneous
  Country: JP (occurrence: JP)
  Receive Date: 20250627
  Receipt Date: 20250723
  Transmission Date: 20251021
  Serious: Yes (Other)
  Sender: CSL BEHRING
  Company Number: JP-CARA THERAPEUTICS, INC.-2024-00508-JP

PATIENT
  Age: 68 Year
  Sex: Female

DRUGS (8)
  1. KORSUVA [Suspect]
     Active Substance: DIFELIKEFALIN ACETATE
     Indication: Pruritus
     Route: 042
     Dates: start: 20241014, end: 20241023
  2. KORSUVA [Suspect]
     Active Substance: DIFELIKEFALIN ACETATE
     Route: 042
     Dates: start: 20250415, end: 20250522
  3. LANTHANUM CARBONATE [Concomitant]
     Active Substance: LANTHANUM CARBONATE
  4. REBAMIPIDE [Concomitant]
     Active Substance: REBAMIPIDE
  5. NIFEDIPINE [Concomitant]
     Active Substance: NIFEDIPINE
  6. OLOPATADINE [Concomitant]
     Active Substance: OLOPATADINE
     Route: 042
     Dates: start: 20241014, end: 20241023
  7. EVOCALCET [Concomitant]
     Active Substance: EVOCALCET
  8. CALCITRIOL [Concomitant]
     Active Substance: CALCITRIOL

REACTIONS (4)
  - Delirium [Recovered/Resolved]
  - Delirium [Recovered/Resolved]
  - Amnesia [Recovered/Resolved]
  - Hallucination, visual [Recovered/Resolved]

NARRATIVE: CASE EVENT DATE: 20241018
